FAERS Safety Report 5381263-5 (Version None)
Quarter: 2007Q3

REPORT INFORMATION
  Report Type: 
  Country: None (occurrence: None)
  Receive Date: 20070702
  Receipt Date: 20070416
  Transmission Date: 20080115
  Serious: Yes (Life-Threatening, Hospitalization, Disabling, Other)
  Sender: FDA-Public Use
  Company Number: 07-000859

PATIENT
  Age: 28 Year
  Sex: Female

DRUGS (3)
  1. LOESTRIN 1.5/30 [Suspect]
     Indication: ENDOMETRIOSIS
     Dosage: 20/1000 UG, QD, ORAL
     Route: 048
     Dates: start: 19990101, end: 20040719
  2. LOESTRIN 1.5/30 [Suspect]
     Indication: ORAL CONTRACEPTION
     Dosage: 20/1000 UG, QD, ORAL
     Route: 048
     Dates: start: 19990101, end: 20040719
  3. MIRCETTE [Suspect]
     Indication: ORAL CONTRACEPTION
     Dosage: QD, ORAL
     Route: 048
     Dates: start: 20041001

REACTIONS (3)
  - CEREBROVASCULAR ACCIDENT [None]
  - HEADACHE [None]
  - METRORRHAGIA [None]
